FAERS Safety Report 5874006-X (Version None)
Quarter: 2008Q3

REPORT INFORMATION
  Report Type: 
  Country: None (occurrence: None)
  Receive Date: 20080908
  Receipt Date: 20080826
  Transmission Date: 20090109
  Serious: Yes (Hospitalization)
  Sender: FDA-Public Use
  Company Number: US-ELI_LILLY_AND_COMPANY-US200808005517

PATIENT
  Age: 29 Year
  Sex: Male

DRUGS (9)
  1. CYMBALTA [Suspect]
     Indication: BRAIN INJURY
     Dosage: 60 MG, UNK
     Dates: start: 20080101, end: 20080801
  2. DANTROLENE SODIUM [Concomitant]
  3. NAMENDA [Concomitant]
  4. PARLODEL [Concomitant]
  5. PROVIGIL [Concomitant]
  6. RITALIN [Concomitant]
  7. ZANAFLEX [Concomitant]
  8. AMANTADINE HCL [Concomitant]
  9. ARICEPT [Concomitant]

REACTIONS (2)
  - AGITATION [None]
  - HOSPITALISATION [None]
